FAERS Safety Report 6328683-X (Version None)
Quarter: 2009Q3

REPORT INFORMATION
  Report Type: 
  Country: None (occurrence: None)
  Receive Date: 20090826
  Receipt Date: 20090819
  Transmission Date: 20100115
  Serious: Yes (Other)
  Sender: FDA-Public Use
  Company Number: PHHY2009BR29522

PATIENT
  Sex: Male
  Weight: 75 kg

DRUGS (2)
  1. SANDOSTATIN LAR [Suspect]
     Indication: PITUITARY TUMOUR
     Dosage: 20 MG, QMO
     Route: 030
     Dates: start: 20070801
  2. RADIOTHERAPY [Concomitant]
     Dosage: UNK
     Route: 065
     Dates: start: 20090701

REACTIONS (8)
  - BLOOD GLUCOSE INCREASED [None]
  - BLOOD GROWTH HORMONE INCREASED [None]
  - BLOOD PROLACTIN INCREASED [None]
  - INSULIN-LIKE GROWTH FACTOR INCREASED [None]
  - MENINGIOMA [None]
  - POOR QUALITY DRUG ADMINISTERED [None]
  - WEIGHT DECREASED [None]
  - WRONG TECHNIQUE IN DRUG USAGE PROCESS [None]
